FAERS Safety Report 9378033 (Version 3)
Quarter: 2013Q3

REPORT INFORMATION
  Report Type: Spontaneous
  Country: CA (occurrence: None)
  Receive Date: 20130625
  Receipt Date: 20130916
  Transmission Date: 20140515
  Serious: Yes (Hospitalization, Other)
  Sender: FDA-Public Use
  Company Number: 2013000136

PATIENT
  Age: 70 Year
  Sex: Female
  Weight: 68 kg

DRUGS (2)
  1. ACEON [Suspect]
     Indication: HYPERTENSION
     Route: 048
     Dates: start: 20130516, end: 20130606
  2. ALLOPURINOL (ALLOPURINOL) [Suspect]
     Indication: PRODUCT USED FOR UNKNOWN INDICATION

REACTIONS (14)
  - Malaise [None]
  - Impaired driving ability [None]
  - Drug hypersensitivity [None]
  - Dizziness [None]
  - Disorientation [None]
  - Stevens-Johnson syndrome [None]
  - Renal failure [None]
  - Hepatitis [None]
  - Cough [None]
  - Pruritus [None]
  - Heart rate increased [None]
  - Blood sodium decreased [None]
  - Chest discomfort [None]
  - Blood pressure increased [None]
